FAERS Safety Report 14557773 (Version 1)
Quarter: 2018Q1

REPORT INFORMATION
  Report Type: Spontaneous
  Country: BR (occurrence: BR)
  Receive Date: 20180221
  Receipt Date: 20180221
  Transmission Date: 20180509
  Serious: Yes (Hospitalization)
  Sender: FDA-Public Use
  Company Number: BR-SILVERGATE PHARMACEUTICALS, INC.-2018SIL00006

PATIENT
  Sex: Female

DRUGS (2)
  1. METHOTREXATE. [Suspect]
     Active Substance: METHOTREXATE
     Indication: GESTATIONAL TROPHOBLASTIC TUMOUR
     Dosage: 1 MG/KG, ON DAYS 1, 3, 5, AND 7 OF EACH 8-DAY CYCLE
     Route: 030
  2. FOLINIC ACID [Concomitant]
     Active Substance: LEUCOVORIN
     Dosage: 0.1 MG/KG, ON DAYS 2, 4, 6, 8 OF EACH 8-DAY CYCLE
     Route: 048

REACTIONS (2)
  - Stomatitis [Recovered/Resolved]
  - Dehydration [Recovered/Resolved]
